FAERS Safety Report 10899874 (Version 1)
Quarter: 2015Q1

REPORT INFORMATION
  Report Type: Spontaneous
  Country: JP (occurrence: JP)
  Receive Date: 20150310
  Receipt Date: 20150310
  Transmission Date: 20150721
  Serious: Yes (Hospitalization, Other)
  Sender: FDA-Public Use
  Company Number: JP-GLAXOSMITHKLINE-JP2015JPN026954

PATIENT
  Age: 73 Year
  Sex: Male
  Weight: 64 kg

DRUGS (9)
  1. CALBLOCK [Concomitant]
     Active Substance: AZELNIDIPINE
     Dosage: 16 MG, 1D
  2. LAMISIL [Concomitant]
     Active Substance: TERBINAFINE HYDROCHLORIDE
  3. VALTREX [Suspect]
     Active Substance: VALACYCLOVIR HYDROCHLORIDE
     Indication: HERPES ZOSTER
     Dosage: 3000 MG, 1D
     Route: 048
     Dates: start: 20141218, end: 20141221
  4. BISOPROLOL FUMARATE. [Concomitant]
     Active Substance: BISOPROLOL FUMARATE
     Dosage: 2.5 MG, 1D
  5. SODIUM BICARBONATE. [Concomitant]
     Active Substance: SODIUM BICARBONATE
     Dosage: 3 G, 1D
  6. ALLOPURINOL. [Concomitant]
     Active Substance: ALLOPURINOL
     Dosage: 100 MG, 1D
  7. ARGAMATE [Concomitant]
     Active Substance: POLYSTYRENE
     Dosage: 2 DF, 1D
  8. OLMETEC [Concomitant]
     Active Substance: OLMESARTAN MEDOXOMIL
     Dosage: 10 MG, 1D
  9. OLMETEC [Concomitant]
     Active Substance: OLMESARTAN MEDOXOMIL
     Dosage: 20 MG, 1D

REACTIONS (5)
  - Dysarthria [Recovered/Resolved]
  - Nervous system disorder [Recovering/Resolving]
  - Renal impairment [Recovered/Resolved]
  - Gait disturbance [Unknown]
  - Overdose [Unknown]

NARRATIVE: CASE EVENT DATE: 20141220
